FAERS Safety Report 19479287 (Version 2)
Quarter: 2021Q3

REPORT INFORMATION
  Report Type: Spontaneous
  Country: NL (occurrence: NL)
  Receive Date: 20210630
  Receipt Date: 20210804
  Transmission Date: 20211014
  Serious: Yes (Death)
  Sender: FDA-Public Use
  Company Number: NVSC2021NL146715

PATIENT
  Age: 70 Year
  Sex: Male

DRUGS (10)
  1. HYDROXYCHLOROQUINE [Concomitant]
     Active Substance: HYDROXYCHLOROQUINE
     Indication: PRODUCT USED FOR UNKNOWN INDICATION
     Dosage: OMHULDE TABLET, 200 MG (MILLIGRAM)
     Route: 065
  2. ETORICOXIB. [Concomitant]
     Active Substance: ETORICOXIB
     Indication: PRODUCT USED FOR UNKNOWN INDICATION
     Dosage: FILMOMHULDE TABLET, 90 MG (MILLIGRAM)
     Route: 065
  3. CLOPIDOGREL [Concomitant]
     Active Substance: CLOPIDOGREL BISULFATE
     Indication: PRODUCT USED FOR UNKNOWN INDICATION
     Dosage: TABLET, 75 MG (MILLIGRAM)
     Route: 065
  4. PANTOPRAZOL [Concomitant]
     Active Substance: PANTOPRAZOLE SODIUM
     Indication: PRODUCT USED FOR UNKNOWN INDICATION
     Dosage: 20 MG
     Route: 065
  5. FOLIUMZUUR [Concomitant]
     Active Substance: FOLIC ACID
     Indication: PRODUCT USED FOR UNKNOWN INDICATION
     Dosage: UNK
     Route: 065
  6. PERINDOPRIL [Concomitant]
     Active Substance: PERINDOPRIL
     Indication: PRODUCT USED FOR UNKNOWN INDICATION
     Dosage: TABLET, 8 MG (MILLIGRAM)
     Route: 065
  7. SIMVASTATINE [Concomitant]
     Active Substance: SIMVASTATIN
     Indication: PRODUCT USED FOR UNKNOWN INDICATION
     Dosage: FILMOMHULDE TABLET, 40 MG (MILLIGRAM)
     Route: 065
  8. SULFASALAZINE. [Concomitant]
     Active Substance: SULFASALAZINE
     Indication: PRODUCT USED FOR UNKNOWN INDICATION
     Dosage: MAAGSAPRESISTENTE TABLET, 500 MG (MILLIGRAM)
     Route: 065
  9. METHOTREXATE (METHOTREXATE SODIUM) [Suspect]
     Active Substance: METHOTREXATE SODIUM
     Indication: RHEUMATOID ARTHRITIS
     Dosage: 1 X PER WEEK 25 MG VIA INJECTIE
     Route: 065
     Dates: start: 2008
  10. CALCIUM CARBONATE. [Concomitant]
     Active Substance: CALCIUM CARBONATE
     Indication: PRODUCT USED FOR UNKNOWN INDICATION
     Dosage: UNK
     Route: 065

REACTIONS (11)
  - Pneumonia [Fatal]
  - Dyspnoea [Fatal]
  - Dizziness [Fatal]
  - Coronary artery stenosis [Fatal]
  - Ventricular tachycardia [Fatal]
  - Pyrexia [Fatal]
  - Vomiting [Fatal]
  - Atrial fibrillation [Fatal]
  - Malaise [Fatal]
  - Myocardial infarction [Fatal]
  - Diarrhoea [Fatal]

NARRATIVE: CASE EVENT DATE: 20210607
